FAERS Safety Report 16260700 (Version 2)
Quarter: 2019Q2

REPORT INFORMATION
  Report Type: Spontaneous
  Country: US (occurrence: US)
  Receive Date: 20190501
  Receipt Date: 20190614
  Transmission Date: 20190711
  Serious: Yes (Other)
  Sender: FDA-Public Use
  Company Number: US-PFIZER INC-2019179683

PATIENT
  Age: 46 Year
  Sex: Female
  Weight: 52.16 kg

DRUGS (5)
  1. CELEBREX [Suspect]
     Active Substance: CELECOXIB
     Indication: ADENOMATOUS POLYPOSIS COLI
     Dosage: 200 MG, 2X/DAY (1 CAPSULE BY MOUTH TWICE A DAY)
     Route: 048
  2. CELEBREX [Suspect]
     Active Substance: CELECOXIB
     Indication: INTERVERTEBRAL DISC DEGENERATION
     Dosage: 200 MG, 2X/DAY
     Route: 048
     Dates: start: 20190420
  3. PROTONIX [Concomitant]
     Active Substance: PANTOPRAZOLE SODIUM
     Dosage: 40 MG, 1X/DAY
     Route: 048
  4. NEXIUM I.V. [Concomitant]
     Active Substance: ESOMEPRAZOLE SODIUM
     Indication: CARDIAC DISORDER
     Dosage: UNK UNK, AS NEEDED
  5. ZANTAC [Concomitant]
     Active Substance: RANITIDINE HYDROCHLORIDE
     Dosage: 300 MG, DAILY

REACTIONS (3)
  - Gastric disorder [Recovered/Resolved]
  - Product use in unapproved indication [Unknown]
  - Off label use [Unknown]

NARRATIVE: CASE EVENT DATE: 201501
